FAERS Safety Report 10451242 (Version 2)
Quarter: 2014Q4

REPORT INFORMATION
  Report Type: Spontaneous
  Country: US (occurrence: US)
  Receive Date: 20140912
  Receipt Date: 20141218
  Transmission Date: 20150528
  Serious: No
  Sender: FDA-Public Use
  Company Number: US-GALDERMA-US14002669

PATIENT
  Age: 51 Year
  Sex: Female

DRUGS (5)
  1. UNKNOWN MOISTURIZER WITH SUNSCREEN [Concomitant]
     Indication: PROPHYLAXIS AGAINST SOLAR RADIATION
  2. ORIGINS FACE CREAM [Concomitant]
     Route: 061
  3. UNKNOWN CLEANSER [Concomitant]
     Indication: THERAPEUTIC SKIN CARE TOPICAL
     Route: 061
  4. UNKNOWN MOISTURIZER WITH SUNSCREEN [Concomitant]
     Indication: DRY SKIN PROPHYLAXIS
     Route: 061
  5. MIRVASO [Suspect]
     Active Substance: BRIMONIDINE TARTRATE
     Indication: ROSACEA
     Dosage: 0.33%
     Route: 061
     Dates: start: 20140712, end: 20140716

REACTIONS (7)
  - Skin burning sensation [Recovered/Resolved]
  - Erythema [Recovered/Resolved]
  - Skin warm [Recovered/Resolved]
  - Feeling hot [Recovered/Resolved]
  - Skin discomfort [Recovered/Resolved]
  - Product use issue [Recovered/Resolved]
  - Flushing [Recovered/Resolved]

NARRATIVE: CASE EVENT DATE: 20140712
